FAERS Safety Report 18580504 (Version 4)
Quarter: 2022Q1

REPORT INFORMATION
  Report Type: Spontaneous
  Country: JP (occurrence: JP)
  Receive Date: 20201204
  Receipt Date: 20220308
  Transmission Date: 20220423
  Serious: Yes (Hospitalization, Other)
  Sender: FDA-Public Use
  Company Number: JP-OTSUKA-2020_030008

PATIENT
  Age: 5 Year
  Sex: Male

DRUGS (2)
  1. BUSULFEX [Suspect]
     Active Substance: BUSULFAN
     Indication: Cord blood transplant therapy
     Dosage: 1.2 MG/KG, DAILY DOSE
     Route: 042
     Dates: start: 20200301, end: 20200304
  2. MELPHALAN [Suspect]
     Active Substance: MELPHALAN
     Indication: Cord blood transplant therapy
     Dosage: UNK
     Route: 065

REACTIONS (1)
  - Fanconi syndrome acquired [Recovered/Resolved]

NARRATIVE: CASE EVENT DATE: 20200303
